FAERS Safety Report 16597372 (Version 1)
Quarter: 2019Q3

REPORT INFORMATION
  Report Type: Spontaneous
  Country: US (occurrence: US)
  Receive Date: 20190719
  Receipt Date: 20190719
  Transmission Date: 20191004
  Serious: No
  Sender: FDA-Public Use
  Company Number: US-PFIZER INC-2019295942

PATIENT
  Age: 53 Year
  Sex: Female

DRUGS (1)
  1. CHANTIX [Suspect]
     Active Substance: VARENICLINE TARTRATE
     Indication: SMOKING CESSATION THERAPY
     Dosage: UNK
     Dates: start: 201906

REACTIONS (14)
  - Feeling abnormal [Unknown]
  - Palpitations [Unknown]
  - Lip discolouration [Unknown]
  - Emotional disorder [Unknown]
  - Thinking abnormal [Unknown]
  - Oral discomfort [Unknown]
  - Restlessness [Unknown]
  - Hyperhidrosis [Unknown]
  - Skin discolouration [Unknown]
  - Panic reaction [Unknown]
  - Headache [Unknown]
  - Intentional dose omission [Unknown]
  - Mania [Unknown]
  - Chapped lips [Unknown]

NARRATIVE: CASE EVENT DATE: 20190707
